FAERS Safety Report 24259221 (Version 2)
Quarter: 2025Q1

REPORT INFORMATION
  Report Type: Spontaneous
  Country: US (occurrence: US)
  Receive Date: 20240828
  Receipt Date: 20250226
  Transmission Date: 20250409
  Serious: No
  Sender: ABBVIE
  Company Number: US-ABBVIE-5895971

PATIENT
  Age: 89 Year
  Sex: Female
  Weight: 47.627 kg

DRUGS (1)
  1. LUMIGAN [Suspect]
     Active Substance: BIMATOPROST
     Indication: Product used for unknown indication
     Route: 047
     Dates: start: 202310

REACTIONS (10)
  - Dizziness [Not Recovered/Not Resolved]
  - Dysgraphia [Unknown]
  - Hand fracture [Unknown]
  - Gait disturbance [Not Recovered/Not Resolved]
  - Fall [Unknown]
  - Vision blurred [Not Recovered/Not Resolved]
  - Altered visual depth perception [Not Recovered/Not Resolved]
  - Muscular weakness [Not Recovered/Not Resolved]
  - Vertigo [Unknown]
  - Eye disorder [Unknown]

NARRATIVE: CASE EVENT DATE: 20230510
